FAERS Safety Report 7920051-X (Version None)
Quarter: 2011Q4

REPORT INFORMATION
  Report Type: 
  Country: None (occurrence: None)
  Receive Date: 20111117
  Receipt Date: 20111110
  Transmission Date: 20120403
  Serious: Yes (Other)
  Sender: FDA-Public Use
  Company Number: US-BAYER-2011-108966

PATIENT
  Age: 79 Year
  Sex: Female

DRUGS (3)
  1. PHILLIPS' MILK OF MAGNESIA LIQUID ORIGINAL [Suspect]
  2. HYDROCODONE BITARTRATE [Concomitant]
  3. COLACE [Concomitant]

REACTIONS (4)
  - SURGERY [None]
  - FAECES DISCOLOURED [None]
  - FLATULENCE [None]
  - ABDOMINAL PAIN UPPER [None]
